FAERS Safety Report 5068555-4 (Version None)
Quarter: 2006Q3

REPORT INFORMATION
  Report Type: 
  Country: None (occurrence: None)
  Receive Date: 20060802
  Receipt Date: 20051128
  Transmission Date: 20061208
  Serious: No
  Sender: FDA-Public Use
  Company Number: US-BRISTOL-MYERS SQUIBB COMPANY-13196126

PATIENT
  Age: 84 Year
  Sex: Male
  Weight: 74 kg

DRUGS (9)
  1. COUMADIN [Suspect]
     Indication: HEART VALVE OPERATION
     Dosage: 5 MG ONCE DAILY, THEN 7.5 MG FOR APPROXIMATELY ONE MONTH
     Dates: start: 20050606
  2. COUMADIN [Suspect]
     Indication: CORONARY ARTERY BYPASS
     Dosage: 5 MG ONCE DAILY, THEN 7.5 MG FOR APPROXIMATELY ONE MONTH
     Dates: start: 20050606
  3. COUMADIN [Suspect]
     Indication: HEART VALVE REPLACEMENT
     Dosage: 5 MG ONCE DAILY, THEN 7.5 MG FOR APPROXIMATELY ONE MONTH
     Dates: start: 20050606
  4. CARDURA [Concomitant]
  5. ASPIRIN [Concomitant]
  6. DOXAZOSIN MESYLATE [Concomitant]
  7. PENTOXIFYLLINE [Concomitant]
  8. THERAPEUTIC MULTIVITAMINS [Concomitant]
  9. OCUVITE [Concomitant]

REACTIONS (4)
  - DIZZINESS [None]
  - DYSURIA [None]
  - EYE PRURITUS [None]
  - OEDEMA PERIPHERAL [None]
